FAERS Safety Report 5465749-0 (Version None)
Quarter: 2007Q3

REPORT INFORMATION
  Report Type: 
  Country: None (occurrence: None)
  Receive Date: 20070924
  Receipt Date: 20070918
  Transmission Date: 20080115
  Serious: Yes (Other)
  Sender: FDA-Public Use
  Company Number: A0681474A

PATIENT
  Sex: Female

DRUGS (2)
  1. ALTABAX [Suspect]
     Indication: IMPETIGO
     Route: 061
  2. NO CONCURRENT MEDICATION [Concomitant]

REACTIONS (2)
  - ERYTHEMA MULTIFORME [None]
  - RASH GENERALISED [None]
